FAERS Safety Report 10203340 (Version 2)
Quarter: 2014Q2

REPORT INFORMATION
  Report Type: Spontaneous
  Country: JP (occurrence: JP)
  Receive Date: 20140529
  Receipt Date: 20140613
  Transmission Date: 20141212
  Serious: Yes (Hospitalization)
  Sender: FDA-Public Use
  Company Number: PHHY2014JP063290

PATIENT
  Age: 86 Year
  Sex: Male
  Weight: 54 kg

DRUGS (3)
  1. EXJADE [Suspect]
     Indication: IRON OVERLOAD
     Dosage: 1000 MG, DAILY
     Route: 048
     Dates: start: 20140423, end: 20140426
  2. EXJADE [Suspect]
     Indication: MYELODYSPLASTIC SYNDROME
  3. MEROPEN//MEROPENEM TRIHYDRATE [Concomitant]
     Dosage: UNK UKN, UNK

REACTIONS (10)
  - Pneumonia aspiration [Unknown]
  - Nausea [Recovering/Resolving]
  - Vomiting [Unknown]
  - Infection [Unknown]
  - Pyrexia [Unknown]
  - Activities of daily living impaired [Unknown]
  - Mobility decreased [Unknown]
  - Decreased appetite [Unknown]
  - Malaise [Unknown]
  - Rash [Unknown]
